FAERS Safety Report 5821187-X (Version None)
Quarter: 2008Q3

REPORT INFORMATION
  Report Type: 
  Country: None (occurrence: None)
  Receive Date: 20080724
  Receipt Date: 20080714
  Transmission Date: 20090109
  Serious: Yes (Hospitalization, Other)
  Sender: FDA-Public Use
  Company Number: US-ABBOTT-08P-163-0456095-00

PATIENT
  Sex: Female
  Weight: 102.15 kg

DRUGS (3)
  1. SYNTHROID [Suspect]
     Indication: HYPOTHYROIDISM
     Route: 048
     Dates: start: 19850101, end: 20060101
  2. SYNTHROID [Suspect]
     Route: 048
     Dates: start: 20060101
  3. SYNTHROID [Suspect]
     Indication: HYPOTHYROIDISM
     Route: 048
     Dates: end: 20080606

REACTIONS (8)
  - ALOPECIA [None]
  - CHEST PAIN [None]
  - FOOD POISONING [None]
  - GUILLAIN-BARRE SYNDROME [None]
  - MIGRAINE [None]
  - PALPITATIONS [None]
  - PNEUMONIA [None]
  - WEIGHT INCREASED [None]
